FAERS Safety Report 15967662 (Version 1)
Quarter: 2019Q1

REPORT INFORMATION
  Report Type: Spontaneous
  Country: US (occurrence: US)
  Receive Date: 20190215
  Receipt Date: 20190215
  Transmission Date: 20190418
  Serious: No
  Sender: FDA-Public Use
  Company Number: US-PERRIGO-18US005047

PATIENT
  Age: 69 Year
  Sex: Female
  Weight: 56.69 kg

DRUGS (2)
  1. CETIRIZINE HYDROCHLORIDE. [Suspect]
     Active Substance: CETIRIZINE HYDROCHLORIDE
     Indication: COUGH
     Dosage: 10 MG, NIGHTLY
     Route: 048
     Dates: start: 20180424, end: 20180503
  2. CETIRIZINE HYDROCHLORIDE. [Suspect]
     Active Substance: CETIRIZINE HYDROCHLORIDE
     Dosage: 1/2 TABLET, NIGHTLY
     Route: 048
     Dates: start: 20180504, end: 20180507

REACTIONS (5)
  - Drug effective for unapproved indication [Unknown]
  - Rebound effect [Not Recovered/Not Resolved]
  - Wrong technique in product usage process [Recovered/Resolved]
  - Somnolence [Not Recovered/Not Resolved]
  - Product administered to patient of inappropriate age [Recovered/Resolved]

NARRATIVE: CASE EVENT DATE: 20180424
